FAERS Safety Report 7833588-9 (Version None)
Quarter: 2011Q4

REPORT INFORMATION
  Report Type: 
  Country: None (occurrence: None)
  Receive Date: 20111024
  Receipt Date: 20111018
  Transmission Date: 20120403
  Serious: Yes (Other)
  Sender: FDA-Public Use
  Company Number: US-VERTEX PHARMACEUTICALS INC.-AE-2011-002402

PATIENT
  Sex: Female

DRUGS (3)
  1. RIBAVIRIN [Concomitant]
     Indication: HEPATITIS C
     Dates: end: 20111005
  2. INCIVEK [Suspect]
     Indication: HEPATITIS C
     Dates: start: 20110710, end: 20111005
  3. PEGASYS [Concomitant]
     Indication: HEPATITIS C
     Dates: end: 20111018

REACTIONS (6)
  - PHOTOPHOBIA [None]
  - ANAL PRURITUS [None]
  - CHILLS [None]
  - DRUG RASH WITH EOSINOPHILIA AND SYSTEMIC SYMPTOMS [None]
  - PYREXIA [None]
  - OEDEMA PERIPHERAL [None]
